FAERS Safety Report 4628085-8 (Version None)
Quarter: 2005Q2

REPORT INFORMATION
  Report Type: 
  Country: None (occurrence: None)
  Receive Date: 20050406
  Receipt Date: 20050311
  Transmission Date: 20051028
  Serious: Yes (Hospitalization, Other)
  Sender: FDA-Public Use
  Company Number: JP-NOVOPROD-242896

PATIENT
  Age: 71 Year
  Sex: Female

DRUGS (2)
  1. NOVORAPID 30 MIX CHU PENFILL [Suspect]
     Indication: INSULIN-REQUIRING TYPE II DIABETES MELLITUS
     Dosage: 21 IU, QD
     Route: 058
     Dates: start: 20050120, end: 20050311
  2. GLUCOBAY [Concomitant]
     Dosage: 300 MG, UNK
     Dates: start: 19910101, end: 20050311

REACTIONS (2)
  - EXANTHEM [None]
  - INJECTION SITE ERYTHEMA [None]
